FAERS Safety Report 21637573 (Version 4)
Quarter: 2023Q1

REPORT INFORMATION
  Report Type: Other
  Country: US (occurrence: None)
  Receive Date: 20221124
  Receipt Date: 20230331
  Transmission Date: 20230418
  Serious: Yes (Other)
  Sender: FDA-Public Use
  Company Number: US-ROCHE-2496408

PATIENT
  Age: 77 Year
  Sex: Male
  Weight: 111.1 kg

DRUGS (22)
  1. ZELBORAF [Suspect]
     Active Substance: VEMURAFENIB
     Indication: Hairy cell leukaemia
     Dosage: TAKE 2 TABLET(S) (480 MG) BY MOUTH EVERY 12 HOURS SWALLOW
     Route: 048
  2. ZELBORAF [Suspect]
     Active Substance: VEMURAFENIB
     Dosage: TAKE 2 TABLET(S) BY MOUTH TWICE A DAY
     Route: 048
  3. ZELBORAF [Suspect]
     Active Substance: VEMURAFENIB
     Dosage: TAKE 2 TABLET(S) BY MOUTH EVERY 12 HOURS
     Route: 048
  4. ZELBORAF [Suspect]
     Active Substance: VEMURAFENIB
     Dosage: TAKE 4 TABLETS BY MOUTH EVERY 12 HOURS, SWALLOW WHOLE WITH FULL GLASS OF WATER
     Route: 048
  5. ZELBORAF [Suspect]
     Active Substance: VEMURAFENIB
     Dosage: TAKE 1 TABLET BY MOUTH EVERY DAY DAYS 1-14 EVERY 28 DAY(S)
     Route: 048
  6. COTELLIC [Suspect]
     Active Substance: COBIMETINIB
     Indication: Hairy cell leukaemia
     Dosage: TAKE 1 TABLET BY MOUTH DAILY FOR 21 DAYS FOLLOWED BY 7 DAYS OFF
     Route: 048
  7. COTELLIC [Suspect]
     Active Substance: COBIMETINIB
     Dosage: TAKE 1 TABLET BY MOUTH (20MG) DAILY ON DAYS 1-14 EVERY 28 DAY(S)?TAKE 1 TABLET BY MOUTH DAILY. DAY 1
     Route: 048
  8. COTELLIC [Suspect]
     Active Substance: COBIMETINIB
     Dosage: TAKE 2 TABLET(S) BY MOUTH EVERY 12 HOURS
     Route: 048
  9. COTELLIC [Suspect]
     Active Substance: COBIMETINIB
     Dosage: TAKE 1 TABLET BY MOUTH EVERY DAY DAYS 1-14 EVERY 28 DAY(S
     Route: 048
  10. RITUXAN [Suspect]
     Active Substance: RITUXIMAB
     Indication: Product used for unknown indication
     Dosage: TABLET BY MOUTH NIGHTLY AS NEEDED FOR SLEEP
     Route: 065
  11. CRESEMBA [Concomitant]
     Active Substance: ISAVUCONAZONIUM SULFATE
     Route: 048
  12. LEVAQUIN [Concomitant]
     Active Substance: LEVOFLOXACIN
     Route: 048
  13. HYZAAR [Concomitant]
     Active Substance: HYDROCHLOROTHIAZIDE\LOSARTAN POTASSIUM
     Dosage: 100-12.5 MG PER TABLET
     Route: 048
  14. TOPROL XL [Concomitant]
     Active Substance: METOPROLOL SUCCINATE
     Dosage: 50 MG 24 HR TABLET
     Route: 048
  15. ZOFRAN [Concomitant]
     Active Substance: ONDANSETRON HYDROCHLORIDE
     Route: 048
  16. FLOMAX [Concomitant]
     Active Substance: TAMSULOSIN HYDROCHLORIDE
     Dosage: 0.4 MG 24 HR CAPSULE
     Route: 048
  17. ULTRAM [Concomitant]
     Active Substance: TRAMADOL HYDROCHLORIDE
     Indication: Pain
  18. VALTREX [Concomitant]
     Active Substance: VALACYCLOVIR HYDROCHLORIDE
     Dosage: TAKE 1 TABLET 500 MG BY MOUTH DAILY.
     Route: 048
  19. CLADRIBINE [Concomitant]
     Active Substance: CLADRIBINE
  20. AMBIEN [Concomitant]
     Active Substance: ZOLPIDEM TARTRATE
     Route: 048
  21. VALACYCLOVIR [Concomitant]
     Active Substance: VALACYCLOVIR HYDROCHLORIDE
     Route: 048
  22. COBIMETINIB [Concomitant]
     Active Substance: COBIMETINIB

REACTIONS (9)
  - Nausea [Not Recovered/Not Resolved]
  - Diarrhoea [Not Recovered/Not Resolved]
  - Gastrointestinal toxicity [Unknown]
  - Headache [Not Recovered/Not Resolved]
  - Drug hypersensitivity [Unknown]
  - Balance disorder [Unknown]
  - Off label use [Unknown]
  - Pneumonia [Unknown]
  - Hearing aid user [Unknown]
